FAERS Safety Report 5475529-8 (Version None)
Quarter: 2007Q4

REPORT INFORMATION
  Report Type: 
  Country: None (occurrence: None)
  Receive Date: 20071003
  Receipt Date: 20070921
  Transmission Date: 20080405
  Serious: Yes (Death)
  Sender: FDA-Public Use
  Company Number: HQWYE395112SEP05

PATIENT
  Sex: Female

DRUGS (4)
  1. PREMARIN [Suspect]
     Dosage: UNKNOWN
     Route: 048
     Dates: start: 19971101, end: 20010401
  2. CYCRIN [Suspect]
  3. PREMPRO [Suspect]
  4. MEDROXYPROGESTERONE ACETATE [Suspect]

REACTIONS (1)
  - BREAST CANCER METASTATIC [None]
